FAERS Safety Report 20705982 (Version 2)
Quarter: 2022Q2

REPORT INFORMATION
  Report Type: Spontaneous
  Country: GB (occurrence: GB)
  Receive Date: 20220413
  Receipt Date: 20220517
  Transmission Date: 20220721
  Serious: Yes (Hospitalization, Other)
  Sender: FDA-Public Use
  Company Number: GB-MYLANLABS-2022M1026669

PATIENT
  Age: 53 Year
  Sex: Female

DRUGS (1)
  1. CLOZARIL [Suspect]
     Active Substance: CLOZAPINE
     Indication: Schizophrenia
     Dosage: 12.5 MILLIGRAM
     Route: 048
     Dates: start: 20160516

REACTIONS (13)
  - Catatonia [Unknown]
  - Blood pressure fluctuation [Unknown]
  - Drooling [Unknown]
  - Toxicity to various agents [Unknown]
  - Loss of consciousness [Unknown]
  - Malaise [Unknown]
  - Neuroleptic malignant syndrome [Unknown]
  - Muscle rigidity [Unknown]
  - Tachycardia [Unknown]
  - Pneumonia aspiration [Unknown]
  - Fall [Unknown]
  - Pyrexia [Unknown]
  - Inappropriate schedule of product administration [Unknown]

NARRATIVE: CASE EVENT DATE: 20220316
